FAERS Safety Report 8063660-2 (Version None)
Quarter: 2012Q1

REPORT INFORMATION
  Report Type: 
  Country: None (occurrence: None)
  Receive Date: 20120123
  Receipt Date: 20120119
  Transmission Date: 20120608
  Serious: Yes (Life-Threatening, Hospitalization)
  Sender: FDA-Public Use
  Company Number: ZW-GILEAD-2012-0048928

PATIENT
  Sex: Female

DRUGS (8)
  1. LAMIVUDINE [Suspect]
     Dosage: 300 MG, QD
     Route: 048
     Dates: start: 20110628
  2. LAMIVUDINE [Suspect]
     Indication: HIV INFECTION
     Dosage: 300 MG, QD
     Route: 048
     Dates: start: 20090917, end: 20110510
  3. TENOFOVIR DISOPROXIL FUMARATE [Suspect]
     Indication: HIV INFECTION
     Dosage: 300 MG, QD
     Route: 048
     Dates: start: 20110628
  4. STAVUDINE [Suspect]
     Indication: HIV INFECTION
     Dosage: 30 MG, BID
     Route: 048
     Dates: start: 20090917, end: 20110510
  5. COTRIM [Concomitant]
     Indication: PROPHYLAXIS
     Dosage: UNK UNK, QHS
     Route: 048
  6. NEVIRAPINE [Suspect]
     Indication: HIV INFECTION
     Dosage: 200 MG, BID
     Route: 048
     Dates: start: 20090917, end: 20110510
  7. NEVIRAPINE [Suspect]
     Dosage: 200 MG, BID
     Route: 048
     Dates: start: 20110628
  8. NORGESTREL AND ETHINYL ESTRADIOL [Suspect]
     Indication: CONTRACEPTION
     Dosage: UNK, QHS
     Route: 048

REACTIONS (1)
  - DIABETIC KETOACIDOSIS [None]
